FAERS Safety Report 5987206-5 (Version None)
Quarter: 2008Q4

REPORT INFORMATION
  Report Type: 
  Country: None (occurrence: None)
  Receive Date: 20081203
  Receipt Date: 20081124
  Transmission Date: 20090506
  Serious: Yes (Other)
  Sender: FDA-Public Use
  Company Number: 20634

PATIENT
  Age: 22 Year
  Sex: Female

DRUGS (4)
  1. VINCRISTINE [Suspect]
     Indication: EWING'S SARCOMA
  2. IFOSFAMIDE [Suspect]
     Indication: EWING'S SARCOMA
  3. DOXORUBICIN HCL [Suspect]
     Indication: EWING'S SARCOMA
  4. ETOPOSIDE [Suspect]
     Indication: EWING'S SARCOMA

REACTIONS (6)
  - HYPOVITAMINOSIS [None]
  - NAUSEA [None]
  - VITAMIN B1 DEFICIENCY [None]
  - VITAMIN B6 DEFICIENCY [None]
  - VOMITING [None]
  - WERNICKE'S ENCEPHALOPATHY [None]
